FAERS Safety Report 10343235 (Version 1)
Quarter: 2014Q3

REPORT INFORMATION
  Report Type: Report from Study
  Country: US (occurrence: US)
  Receive Date: 20140725
  Receipt Date: 20140725
  Transmission Date: 20150326
  Serious: Yes (Death, Hospitalization, Other)
  Sender: FDA-Public Use
  Company Number: US-EXELIXIS-XL18414004524

PATIENT
  Age: 66 Year
  Sex: Male
  Weight: 76 kg

DRUGS (20)
  1. TARCEVA [Concomitant]
     Active Substance: ERLOTINIB HYDROCHLORIDE
     Indication: NON-SMALL CELL LUNG CANCER
     Dosage: 150 MG, QD
     Route: 048
     Dates: start: 20130604, end: 20130614
  2. VITAMIN C [Concomitant]
     Active Substance: ASCORBIC ACID
  3. TUMS 500 CALCIUM [Concomitant]
  4. PANTOPRAZOLE [Concomitant]
     Active Substance: PANTOPRAZOLE SODIUM
  5. MONODOX [Concomitant]
     Active Substance: DOXYCYCLINE
  6. FLORINEF ACETATE [Concomitant]
     Active Substance: FLUDROCORTISONE ACETATE
  7. CORTISONE [Concomitant]
     Active Substance: CORTISONE\HYDROCORTISONE
  8. ASPIRIN. [Concomitant]
     Active Substance: ASPIRIN
  9. MAGNESIUM OXIDE. [Concomitant]
     Active Substance: MAGNESIUM OXIDE
  10. SYNTHROID [Concomitant]
     Active Substance: LEVOTHYROXINE SODIUM
  11. CIALIS [Concomitant]
     Active Substance: TADALAFIL
  12. TARCEVA [Concomitant]
     Active Substance: ERLOTINIB HYDROCHLORIDE
     Dosage: 100 MG, QD
     Dates: start: 20130625, end: 20130810
  13. METOPROLOL [Concomitant]
     Active Substance: METOPROLOL
     Indication: PRODUCT USED FOR UNKNOWN INDICATION
     Dosage: 12.5 MG, BID
     Route: 048
  14. CENTRUM [Concomitant]
     Active Substance: VITAMINS
  15. XL184 [Suspect]
     Active Substance: CABOZANTINIB
     Indication: NON-SMALL CELL LUNG CANCER
     Dosage: 40 MG, QD
     Route: 048
     Dates: start: 20130604, end: 20130614
  16. XL184 [Suspect]
     Active Substance: CABOZANTINIB
     Dosage: 20 MG, EVERY 5 WEEKS
     Route: 048
     Dates: start: 20130625, end: 20130810
  17. CORTEF [Concomitant]
     Active Substance: HYDROCORTISONE
  18. MULTIVITAMINS WITH MINERALS [Concomitant]
     Active Substance: MINERALS\VITAMINS
  19. ZOFRAN [Concomitant]
     Active Substance: ONDANSETRON HYDROCHLORIDE
  20. IMODIUM [Concomitant]
     Active Substance: LOPERAMIDE HYDROCHLORIDE

REACTIONS (6)
  - Hypokalaemia [Recovered/Resolved]
  - Lymphocyte count decreased [Recovered/Resolved]
  - Confusional state [Recovering/Resolving]
  - Electrolyte imbalance [Unknown]
  - Cardiac failure congestive [Unknown]
  - Death [Fatal]

NARRATIVE: CASE EVENT DATE: 20130809
